FAERS Safety Report 8605669-3 (Version None)
Quarter: 2012Q3

REPORT INFORMATION
  Report Type: 
  Country: None (occurrence: None)
  Receive Date: 20120820
  Receipt Date: 20120809
  Transmission Date: 20120928
  Serious: Yes (Hospitalization, Other)
  Sender: FDA-Public Use
  Company Number: US-ROCHE-1061201

PATIENT
  Sex: Female
  Weight: 54.48 kg

DRUGS (2)
  1. ACCUTANE [Suspect]
     Indication: ACNE
     Dates: start: 20020329, end: 20020901
  2. YASMIN [Concomitant]

REACTIONS (9)
  - CROHN'S DISEASE [None]
  - INFLAMMATORY BOWEL DISEASE [None]
  - DEPRESSION [None]
  - INTESTINAL OBSTRUCTION [None]
  - BLOOD TRIGLYCERIDES INCREASED [None]
  - IRRITABLE BOWEL SYNDROME [None]
  - ENTEROVESICAL FISTULA [None]
  - HEADACHE [None]
  - CHAPPED LIPS [None]
